FAERS Safety Report 10208372 (Version 1)
Quarter: 2014Q2

REPORT INFORMATION
  Report Type: Spontaneous
  Country: US (occurrence: US)
  Receive Date: 20140530
  Receipt Date: 20140530
  Transmission Date: 20141212
  Serious: No
  Sender: FDA-Public Use
  Company Number: US-BAYER-2014-068129

PATIENT
  Age: 82 Year
  Sex: Male
  Weight: 87 kg

DRUGS (6)
  1. ALEVE CAPLET [Suspect]
     Indication: INFLAMMATION
     Dosage: UNK UNK, BID
     Route: 048
     Dates: start: 2009, end: 201404
  2. ALEVE CAPLET [Suspect]
     Indication: PAIN
     Dosage: 1 DF, BID
     Dates: start: 20140427, end: 20140430
  3. ALEVE CAPLET [Suspect]
     Indication: INFLAMMATION
     Dosage: 2 DF, BID
     Dates: start: 20140501, end: 20140504
  4. ALEVE CAPLET [Suspect]
     Indication: INFLAMMATION
     Dosage: 3 DF, QD
     Dates: start: 20140505
  5. SIMVASTATIN [Concomitant]
  6. FINASTERIDE [Concomitant]

REACTIONS (5)
  - Expired product administered [None]
  - Medication error [None]
  - Drug ineffective [None]
  - Extra dose administered [None]
  - Drug ineffective [None]
